FAERS Safety Report 9196599 (Version 1)
Quarter: 2013Q1

REPORT INFORMATION
  Report Type: Spontaneous
  Country: US (occurrence: US)
  Receive Date: 20130328
  Receipt Date: 20130328
  Transmission Date: 20140127
  Serious: No
  Sender: FDA-Public Use
  Company Number: US-PFIZER INC-2013096859

PATIENT
  Age: 35 Year
  Sex: Female

DRUGS (6)
  1. MORPHINE [Suspect]
     Dosage: UNK
  2. DIAMOX [Suspect]
     Dosage: UNK
  3. ATIVAN [Suspect]
     Dosage: UNK
  4. METOCLOPRAMIDE HCL [Suspect]
     Dosage: UNK
  5. LEVAQUIN [Suspect]
     Dosage: UNK
  6. DOMPERIDONE [Suspect]
     Dosage: UNK

REACTIONS (1)
  - Drug hypersensitivity [Unknown]
